FAERS Safety Report 17927859 (Version 1)
Quarter: 2020Q2

REPORT INFORMATION
  Report Type: Other
  Country: US (occurrence: US)
  Receive Date: 20200623
  Receipt Date: 20200623
  Transmission Date: 20200714
  Serious: No
  Sender: FDA-Public Use
  Company Number: US-BIOVITRUM-2019US1181

PATIENT
  Sex: Female

DRUGS (4)
  1. KINERET [Suspect]
     Active Substance: ANAKINRA
     Indication: PERICARDIAL EFFUSION
     Route: 058
     Dates: start: 20190429
  2. COLCHICINE. [Concomitant]
     Active Substance: COLCHICINE
  3. FOLIC ACID. [Concomitant]
     Active Substance: FOLIC ACID
  4. PANTOPRAZOLE [Concomitant]
     Active Substance: PANTOPRAZOLE

REACTIONS (3)
  - Burning sensation [Unknown]
  - Pruritus [Not Recovered/Not Resolved]
  - Off label use [Unknown]
